FAERS Safety Report 12847074 (Version 1)
Quarter: 2016Q4

REPORT INFORMATION
  Report Type: Spontaneous
  Country: US (occurrence: US)
  Receive Date: 20161014
  Receipt Date: 20161014
  Transmission Date: 20170207
  Serious: No
  Sender: FDA-Public Use
  Company Number: US-MANNKIND CORPORATION-2016MK000312

PATIENT
  Age: 65 Year
  Sex: Male
  Weight: 110.78 kg

DRUGS (1)
  1. AFREZZA [Suspect]
     Active Substance: INSULIN HUMAN
     Indication: PRODUCT USED FOR UNKNOWN INDICATION
     Dates: end: 20160629

REACTIONS (1)
  - Forced expiratory volume decreased [Recovered/Resolved with Sequelae]

NARRATIVE: CASE EVENT DATE: 201511
